FAERS Safety Report 5929309-7 (Version None)
Quarter: 2008Q4

REPORT INFORMATION
  Report Type: 
  Country: None (occurrence: None)
  Receive Date: 20081024
  Receipt Date: 20081014
  Transmission Date: 20090506
  Serious: Yes (Other)
  Sender: FDA-Public Use
  Company Number: DE-WYE-H06408208

PATIENT
  Age: 73 Year
  Sex: Female

DRUGS (3)
  1. PANTOZOL [Suspect]
     Indication: HELICOBACTER GASTRITIS
     Route: 048
  2. CLARITHROMYCIN [Suspect]
     Indication: HELICOBACTER GASTRITIS
     Route: 048
  3. AMOXICILLIN TRIHYDRATE [Suspect]
     Indication: HELICOBACTER GASTRITIS
     Route: 048

REACTIONS (6)
  - EYE INFLAMMATION [None]
  - HEADACHE [None]
  - PRURITUS [None]
  - RASH MORBILLIFORM [None]
  - RASH PUSTULAR [None]
  - SKIN EXFOLIATION [None]
